FAERS Safety Report 8813515 (Version 1)
Quarter: 2012Q4

REPORT INFORMATION
  Report Type: 
  Country: US (occurrence: US)
  Receive Date: 20120927
  Receipt Date: 20120927
  Transmission Date: 20130627
  Serious: No
  Sender: FDA-Public Use
  Company Number: US-AMGEN-USASP2012043835

PATIENT
  Age: 55 Year
  Sex: Female

DRUGS (6)
  1. PROLIA [Suspect]
     Indication: PRODUCT USED FOR UNKNOWN INDICATION
     Dosage: 1 mg, q6mo
     Route: 058
     Dates: start: 20120606
  2. VITAMIN D /00107901/ [Concomitant]
  3. CALCIUM CARBONATE [Concomitant]
  4. SUMATRIPTAN [Concomitant]
  5. ZOCOR [Concomitant]
  6. DOXYCYCLIN AL                      /00055702/ [Concomitant]

REACTIONS (6)
  - Swelling [Unknown]
  - Photosensitivity reaction [Recovering/Resolving]
  - Oedema [Recovering/Resolving]
  - Rash [Unknown]
  - Erythema [Recovering/Resolving]
  - Urticaria [Recovered/Resolved]
